FAERS Safety Report 19224955 (Version 1)
Quarter: 2021Q2

REPORT INFORMATION
  Report Type: Spontaneous
  Country: US (occurrence: US)
  Receive Date: 20210505
  Receipt Date: 20210505
  Transmission Date: 20210717
  Serious: No
  Sender: FDA-Public Use
  Company Number: US-ROCHE-2679148

PATIENT
  Sex: Male

DRUGS (15)
  1. ESBRIET [Suspect]
     Active Substance: PIRFENIDONE
     Indication: PULMONARY FIBROSIS
     Dosage: 1 TAB BY MOUTH THREE TIMES A DAY
     Route: 048
  2. METFORMIN HCL [Concomitant]
     Active Substance: METFORMIN HYDROCHLORIDE
  3. CYCLOBENZAPRINE HCL [Concomitant]
     Active Substance: CYCLOBENZAPRINE HYDROCHLORIDE
  4. HYDROCHLOROTHIAZIDE. [Concomitant]
     Active Substance: HYDROCHLOROTHIAZIDE
  5. MIRAPEX [Concomitant]
     Active Substance: PRAMIPEXOLE DIHYDROCHLORIDE
  6. CARVEDILOL. [Concomitant]
     Active Substance: CARVEDILOL
  7. LIVALO [Concomitant]
     Active Substance: PITAVASTATIN CALCIUM
  8. OMEPRAZOLE. [Concomitant]
     Active Substance: OMEPRAZOLE
  9. ARMODAFINIL. [Concomitant]
     Active Substance: ARMODAFINIL
  10. LISINOPRIL. [Concomitant]
     Active Substance: LISINOPRIL
  11. WELLBUTRIN SR [Concomitant]
     Active Substance: BUPROPION HYDROCHLORIDE
  12. FLUTICASONE PROPIONATE. [Concomitant]
     Active Substance: FLUTICASONE PROPIONATE
  13. LEVOTHYROXINE SODIUM. [Concomitant]
     Active Substance: LEVOTHYROXINE SODIUM
  14. ALBUTEROL SULFATE. [Concomitant]
     Active Substance: ALBUTEROL SULFATE
  15. MONTELUKAST SODIUM. [Concomitant]
     Active Substance: MONTELUKAST SODIUM

REACTIONS (3)
  - Parosmia [Unknown]
  - Taste disorder [Unknown]
  - Paranasal sinus hypersecretion [Unknown]
